FAERS Safety Report 8339560-7 (Version None)
Quarter: 2012Q2

REPORT INFORMATION
  Report Type: 
  Country: None (occurrence: None)
  Receive Date: 20120507
  Receipt Date: 20120501
  Transmission Date: 20120825
  Serious: Yes (Other)
  Sender: FDA-Public Use
  Company Number: PHHY2012MX029364

PATIENT
  Sex: Female

DRUGS (3)
  1. BETAMETHASONE [Concomitant]
     Dosage: UNK UKN, UNK
  2. DIOVAN HCT [Suspect]
     Indication: HYPERTENSION
     Dosage: 01 TABLET PER DAY (320 /25 MG)
     Dates: start: 20080502
  3. FLAGYL [Concomitant]
     Dosage: UNK UKN, UNK

REACTIONS (3)
  - DYSPNOEA [None]
  - NEAR DROWNING [None]
  - MALAISE [None]
